FAERS Safety Report 18940859 (Version 1)
Quarter: 2021Q1

REPORT INFORMATION
  Report Type: Spontaneous
  Country: US (occurrence: US)
  Receive Date: 20210225
  Receipt Date: 20210225
  Transmission Date: 20210420
  Serious: Yes (Hospitalization)
  Sender: FDA-Public Use
  Company Number: None

PATIENT
  Age: 24 Year
  Sex: Male
  Weight: 74.25 kg

DRUGS (2)
  1. ARISTADA (ARIPIPRAZOLE LAUROXIL) [Concomitant]
  2. ARIPIPRAZOLE 20MG TAB [Suspect]
     Active Substance: ARIPIPRAZOLE
     Indication: SCHIZOPHRENIA
     Dosage: ?          QUANTITY:1 TABLET(S);?
     Route: 048
     Dates: start: 20210120, end: 20210209

REACTIONS (2)
  - Schizophrenia [None]
  - Product substitution issue [None]

NARRATIVE: CASE EVENT DATE: 20210203
